FAERS Safety Report 6380123-0 (Version None)
Quarter: 2009Q3

REPORT INFORMATION
  Report Type: 
  Country: None (occurrence: None)
  Receive Date: 20090929
  Receipt Date: 20090916
  Transmission Date: 20100115
  Serious: Yes (Hospitalization)
  Sender: FDA-Public Use
  Company Number: US-RB-020863-09

PATIENT
  Age: 18 Year
  Sex: Male

DRUGS (2)
  1. DELSYM [Suspect]
     Route: 048
     Dates: start: 20090913
  2. MUCINEX DM [Suspect]
     Route: 048
     Dates: start: 20090913

REACTIONS (2)
  - DYSARTHRIA [None]
  - OVERDOSE [None]
